FAERS Safety Report 7432051 (Version 3)
Quarter: 2013Q4

REPORT INFORMATION
  Report Type: Spontaneous
  Country: US (occurrence: US)
  Receive Date: 20100624
  Receipt Date: 20131115
  Transmission Date: 20140711
  Serious: Yes (Other)
  Sender: FDA-Public Use
  Company Number: US-BAYER-201025775NA

PATIENT
  Age: 17 Year
  Sex: Female
  Weight: 45.35 kg

DRUGS (6)
  1. YAZ [Suspect]
  2. PHENERGAN [Concomitant]
     Dosage: UNK
     Dates: start: 200804
  3. PROTONIX [Concomitant]
     Indication: ANXIETY
     Dosage: UNK
     Dates: start: 200804
  4. PROZAC [Concomitant]
     Indication: ANXIETY
     Dosage: UNK
     Dates: start: 2007
  5. PROZAC [Concomitant]
     Indication: ANXIETY
     Dosage: UNK
     Dates: start: 200804
  6. LORTAB [Concomitant]
     Dosage: UNK
     Dates: start: 2008

REACTIONS (4)
  - Cholecystectomy [Unknown]
  - Pain [Unknown]
  - Cholecystitis chronic [None]
  - Biliary dyskinesia [None]
